FAERS Safety Report 4962511-X (Version None)
Quarter: 2006Q1

REPORT INFORMATION
  Report Type: 
  Country: None (occurrence: None)
  Receive Date: 20060201
  Receipt Date: 20051021
  Transmission Date: 20060701
  Serious: No
  Sender: FDA-Public Use
  Company Number: 2005PV004336

PATIENT
  Age: 43 Year
  Sex: Female
  Weight: 86.1834 kg

DRUGS (5)
  1. BYETTA [Suspect]
     Indication: DIABETES MELLITUS INSULIN-DEPENDENT
     Dosage: 5 MCG; BID; SC
     Route: 058
     Dates: start: 20050917, end: 20050924
  2. LANTUS [Concomitant]
  3. AVANDAMET [Concomitant]
  4. ADVAIR DISKUS 100/50 [Concomitant]
  5. MAXAIR [Concomitant]

REACTIONS (6)
  - DIARRHOEA [None]
  - INFLUENZA LIKE ILLNESS [None]
  - INJECTION SITE INDURATION [None]
  - NAUSEA [None]
  - PALLOR [None]
  - RETCHING [None]
